FAERS Safety Report 11198610 (Version 3)
Quarter: 2015Q3

REPORT INFORMATION
  Report Type: Spontaneous
  Country: DE (occurrence: DE)
  Receive Date: 20150618
  Receipt Date: 20150810
  Transmission Date: 20151125
  Serious: Yes (Other)
  Sender: FDA-Public Use
  Company Number: DE-UCBSA-2015019795

PATIENT
  Age: 81 Year
  Sex: Male
  Weight: 68 kg

DRUGS (14)
  1. REQUIP [Concomitant]
     Active Substance: ROPINIROLE HYDROCHLORIDE
     Indication: PARKINSON^S DISEASE
     Dosage: 8-4 MG, 2X/DAY (BID)
     Route: 048
     Dates: start: 2005
  2. MADOPAR [Concomitant]
     Active Substance: BENSERAZIDE HYDROCHLORIDE\LEVODOPA
     Indication: PARKINSON^S DISEASE
     Dosage: 125 MG, 3X/DAY (TID)
     Route: 048
     Dates: start: 2005
  3. ARANESP [Concomitant]
     Active Substance: DARBEPOETIN ALFA
     Indication: PRODUCT USED FOR UNKNOWN INDICATION
     Dosage: 80MG, EVERY 2-3 WEEKS
  4. MTX [Concomitant]
     Active Substance: METHOTREXATE SODIUM
     Dosage: 7.5MG/WEEK
     Dates: start: 2013
  5. VITAMIN D [Concomitant]
     Active Substance: CHOLECALCIFEROL
     Indication: OSTEOPOROSIS
     Dosage: UNK
     Dates: start: 201302
  6. FLUCONAZOLE. [Concomitant]
     Active Substance: FLUCONAZOLE
     Indication: PRODUCT USED FOR UNKNOWN INDICATION
  7. AZILECT [Concomitant]
     Active Substance: RASAGILINE MESYLATE
     Indication: PARKINSON^S DISEASE
     Dosage: 1 MG, ONCE DAILY (1MG-0-0)
     Route: 048
     Dates: start: 2005
  8. MTX [Concomitant]
     Active Substance: METHOTREXATE SODIUM
     Indication: PRODUCT USED FOR UNKNOWN INDICATION
     Dosage: 11.25 FOR 4 WEEKS
     Dates: start: 20130622, end: 2013
  9. MTX [Concomitant]
     Active Substance: METHOTREXATE SODIUM
     Dosage: 7.5MG/WEEK
  10. DEXA [Concomitant]
     Active Substance: DEXAMETHASONE
     Indication: OSTEOPOROSIS
     Dosage: UNK
     Dates: start: 201302
  11. THYROXINE [Concomitant]
     Active Substance: LEVOTHYROXINE
     Indication: PRODUCT USED FOR UNKNOWN INDICATION
     Dosage: 75 MG DAILY
  12. ANALGIN [Concomitant]
     Active Substance: METAMIZOLE SODIUM
     Indication: PRODUCT USED FOR UNKNOWN INDICATION
     Dosage: 500 MG, AS NEEDED (PRN)
  13. CIMZIA [Suspect]
     Active Substance: CERTOLIZUMAB PEGOL
     Indication: RHEUMATOID ARTHRITIS
     Dosage: 200 MG, EV 2 WEEKS(QOW)
     Route: 058
     Dates: start: 20140520
  14. MTX [Concomitant]
     Active Substance: METHOTREXATE SODIUM
     Dosage: 11.25/ WEEK
     Dates: end: 2013

REACTIONS (6)
  - Skeletal injury [Unknown]
  - Dyspnoea [Unknown]
  - Fall [Unknown]
  - Dysphagia [Unknown]
  - Hypotension [Unknown]
  - Syncope [Not Recovered/Not Resolved]

NARRATIVE: CASE EVENT DATE: 20140520
